FAERS Safety Report 16884620 (Version 1)
Quarter: 2019Q4

REPORT INFORMATION
  Report Type: Spontaneous
  Country: US (occurrence: US)
  Receive Date: 20191003
  Receipt Date: 20191003
  Transmission Date: 20200122
  Serious: Yes (Other)
  Sender: FDA-Public Use
  Company Number: None

PATIENT
  Age: 59 Year
  Sex: Female
  Weight: 94.95 kg

DRUGS (36)
  1. QVAR REDIHALER [Concomitant]
     Active Substance: BECLOMETHASONE DIPROPIONATE
  2. VALSARTAN 160MG [Concomitant]
     Active Substance: VALSARTAN
  3. LEVOTHRYROXINE 50 MCG [Concomitant]
  4. B- COMPLEX [Concomitant]
  5. VITAMIN E 400IU [Concomitant]
  6. RANITIDINE 150 MG [Concomitant]
     Active Substance: RANITIDINE
  7. VITAMIN D 5,000 IU [Concomitant]
  8. MELATONIN 5 MG [Concomitant]
  9. BUPROPRION XL 150 MG [Concomitant]
     Active Substance: BUPROPION
  10. TRAMADOL 50 MG [Concomitant]
     Active Substance: TRAMADOL
  11. OMEGA 3-6-9 2,000 MG [Concomitant]
  12. TOLTERODINE 4 MG [Concomitant]
     Active Substance: TOLTERODINE
  13. VITAMIN E [Concomitant]
     Active Substance: .ALPHA.-TOCOPHEROL
  14. BENZONATATE 100 MG CAP [Suspect]
     Active Substance: BENZONATATE
     Indication: COUGH
     Dosage: ?          QUANTITY:90 CAPSULE(S);OTHER FREQUENCY:2 TO 3 TIMES A DAY;?
     Route: 048
     Dates: start: 20190919, end: 20190921
  15. BACTROBAN (MUPIROCIN 2% CREAM) [Concomitant]
  16. SINGULAIR (MONTELUCAST) 10 MG [Concomitant]
  17. NIACIN 1,200 MG [Concomitant]
  18. AMITRYPTILINE 50 MG [Concomitant]
  19. GABPATENIN 600MG [Concomitant]
  20. AMLODIPINE 10 MG [Concomitant]
     Active Substance: AMLODIPINE BESYLATE
  21. METOPOROLOL 50 MG [Concomitant]
  22. LORATIDINE 10 MG [Concomitant]
  23. VITAMIN D [Concomitant]
     Active Substance: VITAMIN D NOS
  24. PROBIOTICA [Concomitant]
     Active Substance: PROBIOTICS NOS
  25. EXEMESTANE 10 MG [Concomitant]
  26. PROBIOTICS [Concomitant]
     Active Substance: PROBIOTICS NOS
  27. PANTOPRAZOLE 40 MG [Concomitant]
     Active Substance: PANTOPRAZOLE SODIUM
  28. SERTRALINE [Concomitant]
     Active Substance: SERTRALINE HYDROCHLORIDE
  29. TUMERIC 1,160 MG [Concomitant]
  30. ONDANSETRON. [Concomitant]
     Active Substance: ONDANSETRON
  31. COXAZOSIN 1 MG [Concomitant]
  32. PREDNISONE 5 MG TABLET ACTAVIS PHARMA [Concomitant]
     Active Substance: PREDNISONE
  33. POTASSIUM CHLORIDE 10 MEQ [Concomitant]
     Active Substance: POTASSIUM CHLORIDE
  34. ELOCON CREAM (MOMETASONE FUROATE) [Concomitant]
  35. HYDROCHLOROTHIAZIDE 25 MG [Concomitant]
     Active Substance: HYDROCHLOROTHIAZIDE
  36. VITAMIN B COMPLEX [Concomitant]
     Active Substance: CYANOCOBALAMIN\DEXPANTHENOL\NIACINAMIDE\PYRIDOXINE HYDROCHLORIDE\RIBOFLAVIN 5^-PHOSPHATE SODIUM\THIAMINE HYDROCHLORIDE\VITAMIN B COMPLEX

REACTIONS (3)
  - Pruritus [None]
  - Ear pruritus [None]
  - Urticaria [None]

NARRATIVE: CASE EVENT DATE: 20190921
